FAERS Safety Report 7592386-4 (Version None)
Quarter: 2011Q3

REPORT INFORMATION
  Report Type: 
  Country: None (occurrence: None)
  Receive Date: 20110705
  Receipt Date: 20110705
  Transmission Date: 20111222
  Serious: Yes (Hospitalization)
  Sender: FDA-Public Use
  Company Number: None

PATIENT
  Sex: Female

DRUGS (1)
  1. PORTIA-21 [Suspect]
     Indication: CONTRACEPTION
     Dosage: 1 TABLET DAILY BY MOUTH
     Route: 048
     Dates: start: 20101201

REACTIONS (3)
  - HAEMORRHAGE [None]
  - BACK PAIN [None]
  - MUSCLE SPASMS [None]
